FAERS Safety Report 11329398 (Version 3)
Quarter: 2017Q4

REPORT INFORMATION
  Report Type: Report from Study
  Country: US (occurrence: US)
  Receive Date: 20150803
  Receipt Date: 20171021
  Transmission Date: 20180320
  Serious: Yes (Other)
  Sender: FDA-Public Use
  Company Number: US-ROCHE-1616033

PATIENT
  Age: 57 Year
  Sex: Female

DRUGS (13)
  1. NUTROPIN AQ [Suspect]
     Active Substance: SOMATROPIN
     Route: 058
  2. SIMVASTATIN. [Concomitant]
     Active Substance: SIMVASTATIN
     Dosage: 1 TABLET IN THE EVENING
     Route: 065
  3. NUTROPIN AQ [Suspect]
     Active Substance: SOMATROPIN
     Route: 058
  4. ADIPEX-P [Concomitant]
     Active Substance: PHENTERMINE HYDROCHLORIDE
     Indication: FATIGUE
  5. NUTROPIN AQ [Suspect]
     Active Substance: SOMATROPIN
     Route: 058
  6. NUTROPIN AQ [Suspect]
     Active Substance: SOMATROPIN
     Route: 058
  7. PLAVIX [Concomitant]
     Active Substance: CLOPIDOGREL BISULFATE
     Route: 065
  8. SINGULAIR [Concomitant]
     Active Substance: MONTELUKAST SODIUM
  9. NUTROPIN AQ [Suspect]
     Active Substance: SOMATROPIN
     Route: 058
  10. NUTROPIN AQ [Suspect]
     Active Substance: SOMATROPIN
     Indication: GROWTH HORMONE DEFICIENCY
     Dosage: NUSPIN 10, PEN 10 MG/2 ML SOLUTION
     Route: 058
     Dates: start: 2006
  11. NUTROPIN AQ [Suspect]
     Active Substance: SOMATROPIN
     Route: 058
  12. AVALIDE [Concomitant]
     Active Substance: HYDROCHLOROTHIAZIDE\IRBESARTAN
     Dosage: 150-12.5 MG
     Route: 065
  13. ADIPEX-P [Concomitant]
     Active Substance: PHENTERMINE HYDROCHLORIDE
     Indication: WEIGHT DECREASED
     Route: 065

REACTIONS (16)
  - Mean platelet volume increased [Unknown]
  - Obesity [Unknown]
  - Insomnia [Unknown]
  - Vitamin D deficiency [Unknown]
  - Mood altered [Unknown]
  - Low density lipoprotein increased [Unknown]
  - Hypercalcaemia [Unknown]
  - Ill-defined disorder [Unknown]
  - Thirst [Unknown]
  - Cerebrovascular accident [Unknown]
  - Hypotension [Unknown]
  - Hypoglycaemia [Unknown]
  - Vitamin B12 deficiency [Unknown]
  - Hyperlipidaemia [Unknown]
  - Polyuria [Unknown]
  - Thrombosis [Unknown]

NARRATIVE: CASE EVENT DATE: 20141108
